FAERS Safety Report 18157708 (Version 1)
Quarter: 2020Q3

REPORT INFORMATION
  Report Type: Spontaneous
  Country: TR (occurrence: TR)
  Receive Date: 20200817
  Receipt Date: 20200817
  Transmission Date: 20201103
  Serious: Yes (Death, Life-Threatening, Hospitalization, Other)
  Sender: FDA-Public Use
  Company Number: TR-MACLEODS PHARMACEUTICALS US LTD-MAC2020027660

PATIENT

DRUGS (2)
  1. METFORMIN [Suspect]
     Active Substance: METFORMIN HYDROCHLORIDE
     Indication: TYPE 2 DIABETES MELLITUS
     Dosage: UNK
     Route: 065
  2. METFORMIN [Suspect]
     Active Substance: METFORMIN HYDROCHLORIDE
     Dosage: 30 DOSAGE FORM OF METFORMIN 1000 MG, (0.4 GR/KG TOTAL)
     Route: 065

REACTIONS (8)
  - Lactic acidosis [Fatal]
  - Acute kidney injury [Fatal]
  - Hypoglycaemia [Unknown]
  - Intentional overdose [Fatal]
  - Respiratory failure [Unknown]
  - Toxicity to various agents [Fatal]
  - Metabolic acidosis [Unknown]
  - Cardiac arrest [Fatal]
